FAERS Safety Report 8264516-2 (Version None)
Quarter: 2012Q2

REPORT INFORMATION
  Report Type: 
  Country: None (occurrence: None)
  Receive Date: 20120404
  Receipt Date: 20120320
  Transmission Date: 20120825
  Serious: Yes (Hospitalization)
  Sender: FDA-Public Use
  Company Number: AT-008050

PATIENT
  Age: 32 Year
  Sex: Female

DRUGS (1)
  1. MENOPUR [Suspect]
     Indication: OVULATION INDUCTION
     Dosage: 2 DF DOSAGE FORM

REACTIONS (2)
  - ASCITES [None]
  - OVARIAN HYPERSTIMULATION SYNDROME [None]
